FAERS Safety Report 6794429-4 (Version None)
Quarter: 2010Q2

REPORT INFORMATION
  Report Type: 
  Country: None (occurrence: None)
  Receive Date: 20100625
  Receipt Date: 20100615
  Transmission Date: 20101027
  Serious: No
  Sender: FDA-Public Use
  Company Number: 2009BI014978

PATIENT
  Age: 48 Year
  Sex: Female

DRUGS (1)
  1. TYSABRI [Suspect]
     Indication: MULTIPLE SCLEROSIS
     Route: 042
     Dates: start: 20061222

REACTIONS (10)
  - AMENORRHOEA [None]
  - BRONCHITIS [None]
  - EAR INFECTION [None]
  - MENORRHAGIA [None]
  - METRORRHAGIA [None]
  - MULTIPLE SCLEROSIS [None]
  - SINUSITIS [None]
  - URINARY TRACT INFECTION [None]
  - VITAMIN D DEFICIENCY [None]
  - WEIGHT INCREASED [None]
